FAERS Safety Report 6045556-0 (Version None)
Quarter: 2009Q1

REPORT INFORMATION
  Report Type: 
  Country: None (occurrence: None)
  Receive Date: 20090121
  Receipt Date: 20090119
  Transmission Date: 20090719
  Serious: Yes (Other)
  Sender: FDA-Public Use
  Company Number: D0060215A

PATIENT
  Age: 30 Year
  Sex: Female

DRUGS (1)
  1. ELMENDOS [Suspect]
     Indication: DEPRESSION
     Route: 048

REACTIONS (2)
  - OEDEMA PERIPHERAL [None]
  - THROMBOCYTHAEMIA [None]
